FAERS Safety Report 13534575 (Version 2)
Quarter: 2017Q2

REPORT INFORMATION
  Report Type: Spontaneous
  Country: US (occurrence: US)
  Receive Date: 20170511
  Receipt Date: 20170515
  Transmission Date: 20170830
  Serious: Yes (Other)
  Sender: FDA-Public Use
  Company Number: PHEH2017US013337

PATIENT
  Age: 58 Year
  Sex: Female
  Weight: 90.71 kg

DRUGS (3)
  1. MESALAMINE. [Concomitant]
     Active Substance: MESALAMINE
     Indication: PRODUCT USED FOR UNKNOWN INDICATION
     Dosage: 0.375 G, QID (4 TIMES A DAY)
     Route: 048
  2. SANDOSTATIN LAR DEPOT [Suspect]
     Active Substance: OCTREOTIDE ACETATE
     Indication: CARCINOID TUMOUR
     Dosage: UNK, (ONCE/ 4 WEEK)
     Route: 030
     Dates: start: 20160101, end: 20170401
  3. SANDOSTATIN LAR DEPOT [Suspect]
     Active Substance: OCTREOTIDE ACETATE
     Dosage: UNK
     Route: 065
     Dates: start: 20170501

REACTIONS (5)
  - Wrong technique in product usage process [Unknown]
  - Hepatic neoplasm [Unknown]
  - Drug ineffective [Unknown]
  - Colitis ulcerative [Unknown]
  - Diarrhoea [Unknown]

NARRATIVE: CASE EVENT DATE: 20160101
